FAERS Safety Report 5329023-5 (Version None)
Quarter: 2007Q2

REPORT INFORMATION
  Report Type: 
  Country: None (occurrence: None)
  Receive Date: 20070518
  Receipt Date: 20070508
  Transmission Date: 20071010
  Serious: Yes (Other)
  Sender: FDA-Public Use
  Company Number: JP-PFIZER INC-2003018218

PATIENT
  Sex: Male

DRUGS (7)
  1. CARDENALIN [Suspect]
     Indication: ILL-DEFINED DISORDER
     Dosage: DAILY DOSE:2MG-FREQ:DAILY
     Route: 048
     Dates: start: 20021005, end: 20021207
  2. CARDENALIN [Suspect]
     Dosage: DAILY DOSE:2MG-FREQ:DAILY
     Route: 048
     Dates: start: 20030118, end: 20030407
  3. AMLODIPINE [Suspect]
     Indication: ILL-DEFINED DISORDER
     Dosage: DAILY DOSE:10MG-FREQ:DAILY
     Route: 048
     Dates: start: 20020810, end: 20021123
  4. AMLODIPINE [Suspect]
     Dosage: DAILY DOSE:5MG-FREQ:DAILY
     Route: 048
     Dates: start: 20021124, end: 20021206
  5. AMLODIPINE [Suspect]
     Dosage: DAILY DOSE:10MG
     Route: 048
  6. TENORMIN [Suspect]
     Indication: ILL-DEFINED DISORDER
     Dosage: DAILY DOSE:25MG-FREQ:DAILY
     Route: 048
  7. FLUITRAN [Concomitant]
     Route: 048
     Dates: start: 20030201, end: 20030407

REACTIONS (1)
  - RHABDOMYOLYSIS [None]
